FAERS Safety Report 19575837 (Version 1)
Quarter: 2021Q3

REPORT INFORMATION
  Report Type: Spontaneous
  Country: US (occurrence: US)
  Receive Date: 20210717
  Receipt Date: 20210717
  Transmission Date: 20211014
  Serious: No
  Sender: FDA-Public Use
  Company Number: None

PATIENT
  Age: 30 Year
  Sex: Female
  Weight: 81 kg

DRUGS (2)
  1. VITIFOL ULTRA CAPSULE PRENATAL VITAMINS [Concomitant]
  2. NEUTROGENA BEACH DEFENSE WATER PLUS SUN PROTECTION SUNSCREEN BROAD SPECTRUM SPF 30 [Suspect]
     Active Substance: AVOBENZONE\HOMOSALATE\OCTISALATE\OCTOCRYLENE
     Indication: PROPHYLAXIS AGAINST SOLAR RADIATION
     Dosage: QUANTITY:1 SPRAY(S);?
     Route: 061
     Dates: start: 20210530, end: 20210714

REACTIONS (1)
  - Cough [None]

NARRATIVE: CASE EVENT DATE: 20210703
